FAERS Safety Report 7012818-X (Version None)
Quarter: 2010Q3

REPORT INFORMATION
  Report Type: 
  Country: None (occurrence: None)
  Receive Date: 20100924
  Receipt Date: 20100914
  Transmission Date: 20110219
  Serious: Yes (Hospitalization)
  Sender: FDA-Public Use
  Company Number: B0674388A

PATIENT
  Sex: Female

DRUGS (2)
  1. LAMICTAL [Suspect]
     Indication: EPILEPSY
  2. DEPAKENE [Concomitant]
     Indication: EPILEPSY
     Dosage: 750MG PER DAY
     Route: 048

REACTIONS (4)
  - ANTICONVULSANT DRUG LEVEL INCREASED [None]
  - DIPLOPIA [None]
  - EPILEPSY [None]
  - GAIT DISTURBANCE [None]
